FAERS Safety Report 4443668-6 (Version None)
Quarter: 2004Q3

REPORT INFORMATION
  Report Type: 
  Country: None (occurrence: None)
  Receive Date: 20040908
  Receipt Date: 20040901
  Transmission Date: 20050211
  Serious: Yes (Hospitalization)
  Sender: FDA-Public Use
  Company Number: FR-GLAXOSMITHKLINE-B0344122A

PATIENT
  Age: 78 Year
  Sex: Male
  Weight: 60 kg

DRUGS (11)
  1. CLAMOXYL [Suspect]
     Indication: ILL-DEFINED DISORDER
     Dosage: 1G THREE TIMES PER DAY
     Route: 048
     Dates: start: 20040715, end: 20040804
  2. AUGMENTIN '125' [Suspect]
     Indication: STAPHYLOCOCCAL INFECTION
     Dates: start: 20040701
  3. PYOSTACINE [Suspect]
     Dosage: 500MG THREE TIMES PER DAY
     Route: 048
     Dates: start: 20040715, end: 20040804
  4. NITROGLYCERIN [Concomitant]
     Dosage: 1UNIT PER DAY
     Route: 048
  5. NEXIUM [Concomitant]
     Route: 048
  6. FORLAX [Concomitant]
     Route: 048
  7. FOLDINE [Concomitant]
     Route: 048
     Dates: start: 20040816
  8. TARDYFERON [Concomitant]
     Route: 048
     Dates: start: 20040816
  9. CORDARONE [Concomitant]
     Route: 048
     Dates: end: 20040806
  10. PREVISCAN [Concomitant]
     Route: 048
     Dates: end: 20040806
  11. TRIFLUCAN [Concomitant]
     Route: 048
     Dates: end: 20040806

REACTIONS (5)
  - CANDIDIASIS [None]
  - ECZEMA [None]
  - RASH MACULO-PAPULAR [None]
  - RASH VESICULAR [None]
  - TOXIC SKIN ERUPTION [None]
